FAERS Safety Report 8170629-6 (Version None)
Quarter: 2012Q1

REPORT INFORMATION
  Report Type: 
  Country: None (occurrence: None)
  Receive Date: 20120228
  Receipt Date: 20120218
  Transmission Date: 20120608
  Serious: Yes (Hospitalization, Other)
  Sender: FDA-Public Use
  Company Number: US-ROCHE-1041831

PATIENT
  Age: 68 Year
  Sex: Female
  Weight: 64 kg

DRUGS (9)
  1. AVASTIN [Suspect]
     Indication: FALLOPIAN TUBE CANCER
  2. PACLITAXEL [Suspect]
     Indication: FALLOPIAN TUBE CANCER
  3. PACLITAXEL [Suspect]
     Indication: MALIGNANT PERITONEAL NEOPLASM
  4. PACLITAXEL [Suspect]
     Indication: OVARIAN CANCER
     Dosage: DATE OF LAST DOSE PRIOR TO SAE: 10/JAN/2012
     Route: 042
     Dates: start: 20110911
  5. CARBOPLATIN [Suspect]
     Indication: FALLOPIAN TUBE CANCER
  6. AVASTIN [Suspect]
     Indication: OVARIAN CANCER
     Dosage: OVER 30-90 MIN ON DAY 1, BEGINNING WITH CYCLE 2-TILL CYCLE 6, DATE OF LAST DOSE PRIOR TO SAE: 10/JAN
     Route: 042
     Dates: start: 20110911
  7. CARBOPLATIN [Suspect]
     Indication: MALIGNANT PERITONEAL NEOPLASM
  8. AVASTIN [Suspect]
     Indication: MALIGNANT PERITONEAL NEOPLASM
  9. CARBOPLATIN [Suspect]
     Indication: OVARIAN CANCER
     Dosage: AUC 6, DATE OF LAST DOSE PRIOR TO SAE, 10/JAN/2012
     Route: 042
     Dates: start: 20110911

REACTIONS (6)
  - PULMONARY CAVITATION [None]
  - PNEUMONITIS [None]
  - HYPOMAGNESAEMIA [None]
  - EMBOLISM [None]
  - HYPERTENSION [None]
  - ANAEMIA [None]
